FAERS Safety Report 20074676 (Version 1)
Quarter: 2021Q4

REPORT INFORMATION
  Report Type: Spontaneous
  Country: US (occurrence: None)
  Receive Date: 20211115
  Receipt Date: 20211115
  Transmission Date: 20220303
  Serious: Yes (Disabling)
  Sender: FDA-Public Use
  Company Number: None

PATIENT
  Age: 59 Year
  Sex: Female
  Weight: 65.25 kg

DRUGS (2)
  1. LORAZEPAM [Suspect]
     Active Substance: LORAZEPAM
     Indication: Chemotherapy
     Dates: start: 19910105, end: 20210716
  2. LEXAPRO [Concomitant]
     Active Substance: ESCITALOPRAM OXALATE

REACTIONS (5)
  - Brain injury [None]
  - Unevaluable event [None]
  - Incorrect product administration duration [None]
  - Withdrawal syndrome [None]
  - Quality of life decreased [None]

NARRATIVE: CASE EVENT DATE: 20210101
